FAERS Safety Report 17157454 (Version 1)
Quarter: 2019Q4

REPORT INFORMATION
  Report Type: Spontaneous
  Country: FR (occurrence: FR)
  Receive Date: 20191216
  Receipt Date: 20191216
  Transmission Date: 20200122
  Serious: Yes (Hospitalization, Other)
  Sender: FDA-Public Use
  Company Number: FR-BIOVITRUM-2019FR4518

PATIENT
  Age: 24 Year
  Sex: Female

DRUGS (1)
  1. KINERET [Suspect]
     Active Substance: ANAKINRA
     Indication: STILL^S DISEASE
     Dates: start: 201012

REACTIONS (4)
  - Hepatocellular injury [Recovered/Resolved]
  - Vomiting [Unknown]
  - Asthenia [Unknown]
  - Bicytopenia [Recovered/Resolved]

NARRATIVE: CASE EVENT DATE: 201101
